FAERS Safety Report 4730258-0 (Version None)
Quarter: 2005Q3

REPORT INFORMATION
  Report Type: 
  Country: None (occurrence: None)
  Receive Date: 20050801
  Receipt Date: 20041021
  Transmission Date: 20060218
  Serious: Yes (Hospitalization)
  Sender: FDA-Public Use
  Company Number: DE-ROCHE-383894

PATIENT
  Age: 46 Year
  Sex: Male
  Weight: 85.3 kg

DRUGS (79)
  1. MYCOPHENOLATE MOFETIL [Suspect]
     Route: 048
     Dates: start: 20040927, end: 20040927
  2. MYCOPHENOLATE MOFETIL [Suspect]
     Route: 048
     Dates: start: 20040928, end: 20040928
  3. MYCOPHENOLATE MOFETIL [Suspect]
     Route: 048
     Dates: start: 20040929
  4. MYCOPHENOLATE MOFETIL [Suspect]
     Route: 048
     Dates: start: 20041002, end: 20041002
  5. MYCOPHENOLATE MOFETIL [Suspect]
     Route: 048
     Dates: start: 20041003
  6. MYCOPHENOLATE MOFETIL [Suspect]
     Route: 048
     Dates: start: 20041005
  7. MYCOPHENOLATE MOFETIL [Suspect]
     Route: 048
     Dates: start: 20041007, end: 20041008
  8. MYCOPHENOLATE MOFETIL [Suspect]
     Route: 048
     Dates: start: 20041009
  9. MYCOPHENOLATE MOFETIL [Suspect]
     Route: 048
     Dates: start: 20050714, end: 20050716
  10. DACLIZUMAB [Suspect]
     Route: 042
     Dates: start: 20040927, end: 20040927
  11. DACLIZUMAB [Suspect]
     Route: 042
     Dates: start: 20041011, end: 20041011
  12. DACLIZUMAB [Suspect]
     Route: 042
     Dates: start: 20041025, end: 20041025
  13. DACLIZUMAB [Suspect]
     Route: 042
     Dates: start: 20041108, end: 20041108
  14. DACLIZUMAB [Suspect]
     Route: 042
     Dates: start: 20041123, end: 20041123
  15. SIROLIMUS [Suspect]
     Route: 048
     Dates: start: 20040927, end: 20040927
  16. SIROLIMUS [Suspect]
     Route: 048
     Dates: start: 20040928, end: 20040929
  17. SIROLIMUS [Suspect]
     Route: 048
     Dates: start: 20040930, end: 20041026
  18. SIROLIMUS [Suspect]
     Route: 048
     Dates: start: 20041027
  19. SIROLIMUS [Suspect]
     Route: 048
     Dates: start: 20041112
  20. SIROLIMUS [Suspect]
     Route: 048
     Dates: start: 20041113
  21. SIROLIMUS [Suspect]
     Route: 048
     Dates: start: 20041224, end: 20050105
  22. SIROLIMUS [Suspect]
     Route: 048
     Dates: start: 20050106
  23. SIROLIMUS [Suspect]
     Route: 048
     Dates: start: 20050127
  24. SIROLIMUS [Suspect]
     Route: 048
     Dates: start: 20050216
  25. SIROLIMUS [Suspect]
     Route: 048
     Dates: start: 20050218
  26. SIROLIMUS [Suspect]
     Route: 048
     Dates: start: 20050324
  27. SIROLIMUS [Suspect]
     Route: 048
     Dates: start: 20050411
  28. SIROLIMUS [Suspect]
     Route: 048
     Dates: start: 20050412
  29. SIROLIMUS [Suspect]
     Route: 048
     Dates: start: 20050604
  30. SIROLIMUS [Suspect]
     Route: 048
     Dates: start: 20050715
  31. PREDNISOLONE [Suspect]
     Route: 048
     Dates: start: 20040927, end: 20040927
  32. PREDNISOLONE [Suspect]
     Route: 048
     Dates: start: 20040928
  33. PREDNISOLONE [Suspect]
     Route: 048
     Dates: start: 20040930, end: 20041002
  34. PREDNISOLONE [Suspect]
     Route: 048
     Dates: start: 20041003
  35. PREDNISOLONE [Suspect]
     Route: 048
     Dates: start: 20041006, end: 20041006
  36. PREDNISOLONE [Suspect]
     Route: 048
     Dates: start: 20041007, end: 20041007
  37. PREDNISOLONE [Suspect]
     Route: 048
     Dates: start: 20041008
  38. PREDNISOLONE [Suspect]
     Route: 048
     Dates: start: 20041015, end: 20041016
  39. PREDNISOLONE [Suspect]
     Route: 048
     Dates: start: 20041017, end: 20041020
  40. PREDNISOLONE [Suspect]
     Route: 048
     Dates: start: 20041021, end: 20041102
  41. PREDNISOLONE [Suspect]
     Route: 048
     Dates: start: 20041103, end: 20041112
  42. PREDNISOLONE [Suspect]
     Route: 048
     Dates: start: 20041113, end: 20041206
  43. PREDNISOLONE [Suspect]
     Route: 048
     Dates: start: 20041207
  44. PREDNISOLONE [Suspect]
     Route: 048
     Dates: start: 20041221
  45. PREDNISOLONE [Suspect]
     Route: 048
     Dates: start: 20041222
  46. PREDNISOLONE [Suspect]
     Route: 048
     Dates: start: 20041223
  47. PREDNISOLONE [Suspect]
     Route: 048
     Dates: start: 20041226, end: 20041226
  48. PREDNISOLONE [Suspect]
     Route: 048
     Dates: start: 20041231
  49. PREDNISOLONE [Suspect]
     Route: 048
     Dates: start: 20050102
  50. PREDNISOLONE [Suspect]
     Route: 048
     Dates: start: 20050105
  51. PREDNISOLONE [Suspect]
     Route: 048
     Dates: start: 20050118
  52. PREDNISOLONE [Suspect]
     Route: 048
     Dates: start: 20050128
  53. PREDNISOLONE [Suspect]
     Route: 048
     Dates: start: 20050217, end: 20050220
  54. PREDNISOLONE [Suspect]
     Route: 048
     Dates: start: 20050224, end: 20050628
  55. PREDNISOLONE [Suspect]
     Route: 048
     Dates: start: 20050714
  56. CIPROFLOXACIN [Suspect]
     Indication: DRUG USE FOR UNKNOWN INDICATION
     Dosage: STOPPED ON THE 25 FEBRUARY 2005 AND RESTARTED ON THE 30 MARCH 2005.
     Route: 065
     Dates: start: 20050119, end: 20050411
  57. RAMIPRIL [Suspect]
     Indication: DRUG USE FOR UNKNOWN INDICATION
     Route: 065
     Dates: start: 20041003, end: 20050411
  58. ACETYLCYSTEINE [Concomitant]
     Dates: start: 20041001, end: 20041016
  59. ACYCLOVIR [Concomitant]
     Dates: start: 20050108, end: 20050114
  60. AMIODARONE HCL [Concomitant]
     Dates: start: 20040930, end: 20041006
  61. AMLODIPINE [Concomitant]
     Dates: start: 20040930
  62. AMPHOTERICIN B [Concomitant]
     Dates: start: 20040928
  63. ATORVASTATIN CALCIUM [Concomitant]
     Dates: start: 20041113, end: 20050406
  64. CEFUROXIM [Concomitant]
     Dosage: STOPPED 2 OCT AND RESTARTED 20 DEC 04.
     Dates: start: 20040928, end: 20041229
  65. CLONIDIN [Concomitant]
     Dosage: DRUG STOPPED ON 18 JANUARY 2005 AND RESTARTED ON 11 APROL 2005.
     Dates: start: 20041006
  66. DARBEPOETIN ALFA [Concomitant]
     Dates: start: 20050323
  67. DIHYDRALAZIN [Concomitant]
     Dates: start: 20040930
  68. FUROSEMIDE [Concomitant]
     Dosage: DRUG STOPPED  ON 2 OCTOBER 2005 AND RESTARTED ON 3 OCTOBER 2005. STOPPED AGAIN ON 7 DECEMBER 2005 A+
     Dates: start: 20040112
  69. KALINOR BRAUSE [Concomitant]
     Dates: start: 20040102, end: 20050204
  70. LEVOFLOXACIN [Concomitant]
     Dates: start: 20041001, end: 20041016
  71. LORAZEPAM [Concomitant]
     Dates: start: 20040930, end: 20040930
  72. METOPROLOL [Concomitant]
     Dates: start: 20040928
  73. MOXONIDINE [Concomitant]
     Dates: start: 20050118, end: 20050411
  74. NEBACETIN [Concomitant]
     Dates: start: 20050108, end: 20050115
  75. ROXITHROMYCIN [Concomitant]
     Dates: start: 20050714
  76. SIMVASTATIN [Concomitant]
     Dosage: DRUG STOPPED ON 17 JUNE 2005 AND RESTARTED ON 22 JUNE 2005.
     Dates: start: 20050406
  77. TAZOBAC [Concomitant]
     Dosage: DRUG STOPPED ON 28 JANUARY 2005 AND RESTARTED ON 15 JULY 2005.
     Dates: start: 20050113, end: 20050717
  78. URAPIDIL [Concomitant]
     Dates: start: 20040928
  79. VORICONAZOL [Concomitant]
     Dates: start: 20050716

REACTIONS (4)
  - ANGIONEUROTIC OEDEMA [None]
  - BLOOD CREATININE INCREASED [None]
  - LYMPHOCELE [None]
  - PNEUMONIA [None]
